FAERS Safety Report 7416941 (Version 2)
Quarter: 2018Q3

REPORT INFORMATION
  Report Type: Spontaneous
  Country: DE (occurrence: DE)
  Receive Date: 20100611
  Receipt Date: 20180830
  Transmission Date: 20181010
  Serious: Yes (Life-Threatening, Hospitalization)
  Sender: FDA-Public Use
  Company Number: DE-ASTRAZENECA-2010SE26381

PATIENT
  Age: 71 Year
  Sex: Female
  Weight: 80 kg

DRUGS (14)
  1. TAVOR [Concomitant]
     Indication: SLEEP DISORDER
     Route: 048
     Dates: start: 2007
  2. SPIRONOLACTONE. [Suspect]
     Active Substance: SPIRONOLACTONE
     Indication: HYPERTENSION
     Route: 048
     Dates: start: 2006, end: 20080826
  3. FUROSEMIDE. [Concomitant]
     Active Substance: FUROSEMIDE
     Indication: HYPERTENSION
     Dosage: DAILY.
     Route: 048
     Dates: start: 1996
  4. ENALAPRIL MALEATE. [Interacting]
     Active Substance: ENALAPRIL MALEATE
     Indication: HYPERTENSION
     Route: 048
     Dates: start: 2000, end: 20080826
  5. NOVORAPID [Concomitant]
     Active Substance: INSULIN ASPART
     Indication: TYPE 2 DIABETES MELLITUS
     Dosage: 26/22/24 IU, THREE TIMES A DAY.
     Route: 058
     Dates: start: 1994
  6. PALLADON [Concomitant]
     Active Substance: HYDROMORPHONE
     Indication: PAIN
     Route: 048
  7. TAVOR [Concomitant]
     Indication: SLEEP DISORDER
     Route: 048
     Dates: start: 2007
  8. BISOPROLOL [Concomitant]
     Active Substance: BISOPROLOL
     Indication: HYPERTENSION
     Route: 048
     Dates: start: 2002
  9. PALLADON [Concomitant]
     Active Substance: HYDROMORPHONE
     Indication: PAIN
     Dosage: 16.0MG UNKNOWN
     Route: 048
  10. LANTUS [Concomitant]
     Active Substance: INSULIN GLARGINE
     Indication: TYPE 2 DIABETES MELLITUS
     Route: 058
     Dates: start: 1994
  11. ATACAND [Suspect]
     Active Substance: CANDESARTAN CILEXETIL
     Indication: HYPERTENSION
     Route: 048
     Dates: start: 2004, end: 20080828
  12. SIMVASTATIN. [Concomitant]
     Active Substance: SIMVASTATIN
     Indication: DYSLIPIDAEMIA
     Route: 048
     Dates: start: 1996
  13. ISDN ^STADA^ [Concomitant]
     Indication: CORONARY ARTERY DISEASE
     Route: 048
     Dates: start: 1996, end: 20080826
  14. ASPIRIN. [Concomitant]
     Active Substance: ASPIRIN
     Indication: CORONARY ARTERY DISEASE
     Route: 048
     Dates: start: 2002, end: 20080826

REACTIONS (2)
  - Drug interaction [Unknown]
  - Hyperkalaemia [Recovered/Resolved]

NARRATIVE: CASE EVENT DATE: 20080820
